FAERS Safety Report 5649469-5 (Version None)
Quarter: 2008Q1

REPORT INFORMATION
  Report Type: 
  Country: None (occurrence: None)
  Receive Date: 20080304
  Receipt Date: 20080226
  Transmission Date: 20080703
  Serious: Yes (Hospitalization)
  Sender: FDA-Public Use
  Company Number: GB-ROCHE-536249

PATIENT
  Age: 30 Year
  Sex: Male

DRUGS (5)
  1. CELLCEPT [Suspect]
     Indication: BEHCET'S SYNDROME
     Route: 048
     Dates: start: 20070701, end: 20080101
  2. CELLCEPT [Suspect]
     Route: 048
     Dates: end: 20070701
  3. AZATHIOPRINE [Concomitant]
     Indication: BEHCET'S SYNDROME
  4. PREDNISOLONE [Concomitant]
     Indication: BEHCET'S SYNDROME
  5. NOVO ALENDRONATE [Concomitant]
     Indication: PROPHYLAXIS

REACTIONS (1)
  - FEELING ABNORMAL [None]
